FAERS Safety Report 10023385 (Version 1)
Quarter: 2014Q1

REPORT INFORMATION
  Report Type: Spontaneous
  Country: US (occurrence: US)
  Receive Date: 20140320
  Receipt Date: 20140320
  Transmission Date: 20141002
  Serious: Yes (Disabling, Other)
  Sender: FDA-Public Use
  Company Number: US-AMGEN-USASP2014018963

PATIENT
  Age: 58 Year
  Sex: Male
  Weight: 73.47 kg

DRUGS (1)
  1. ENBREL [Suspect]
     Indication: RHEUMATOID ARTHRITIS
     Dosage: 50 MG, QWK
     Route: 058
     Dates: start: 2007

REACTIONS (4)
  - Actinic keratosis [Recovering/Resolving]
  - Sports injury [Unknown]
  - Joint injury [Recovered/Resolved with Sequelae]
  - Rotator cuff syndrome [Recovering/Resolving]
